FAERS Safety Report 4763467-5 (Version None)
Quarter: 2005Q3

REPORT INFORMATION
  Report Type: 
  Country: None (occurrence: None)
  Receive Date: 20050908
  Receipt Date: 20050825
  Transmission Date: 20060218
  Serious: Yes (Hospitalization, Other)
  Sender: FDA-Public Use
  Company Number: PL-AMGEN-UK148021

PATIENT
  Sex: Male
  Weight: 80 kg

DRUGS (24)
  1. NEUPOGEN [Suspect]
     Indication: CHEMOTHERAPY
     Route: 058
     Dates: start: 20050314, end: 20050314
  2. OMEPRAZOLE [Concomitant]
     Route: 048
     Dates: start: 20050314
  3. ENALAPRIL MALEATE [Concomitant]
     Route: 048
     Dates: start: 20050314
  4. METOPROLOL TARTRATE [Concomitant]
     Route: 048
  5. TIANEPTINE [Concomitant]
     Route: 048
  6. HYDROXYZINE [Concomitant]
     Route: 048
  7. BROMHEXINE HYDROCHLORIDE [Concomitant]
     Route: 048
  8. CODEINE PHOSPHATE [Concomitant]
     Route: 048
  9. TOLPERISONE [Concomitant]
     Route: 048
  10. ALLOPURINOL [Concomitant]
     Route: 048
  11. CO-TRIMOXAZOLE [Concomitant]
     Route: 048
  12. POTASSIUM [Concomitant]
     Route: 048
  13. CARBAMAZEPINE [Concomitant]
     Route: 048
  14. DICLOFENAC SODIUM [Concomitant]
     Route: 048
  15. HALOPERIDOL [Concomitant]
     Route: 048
  16. MIANSERIN HYDROCHLORIDE [Concomitant]
     Route: 048
  17. CLOMIPRAMINE HCL [Concomitant]
     Route: 048
  18. KETOCONAZOLE [Concomitant]
     Route: 048
  19. MAGNESIUM SULFATE [Concomitant]
     Route: 048
  20. UNSPECIFIED ANTIANXIETY AGENT [Concomitant]
     Route: 048
  21. ETOPOSIDE [Concomitant]
     Route: 065
     Dates: start: 20050305
  22. DEXAMETHASONE [Concomitant]
     Route: 065
     Dates: start: 20050305
  23. CISPLATIN [Concomitant]
     Route: 065
     Dates: start: 20050305
  24. CYTARABINE [Concomitant]
     Route: 065
     Dates: start: 20050305

REACTIONS (4)
  - BLOOD PRESSURE DECREASED [None]
  - CHILLS [None]
  - CONFUSIONAL STATE [None]
  - HYPOTONIA [None]
